FAERS Safety Report 6930929-1 (Version None)
Quarter: 2010Q3

REPORT INFORMATION
  Report Type: 
  Country: None (occurrence: None)
  Receive Date: 20100818
  Receipt Date: 20100811
  Transmission Date: 20110219
  Serious: Yes (Other)
  Sender: FDA-Public Use
  Company Number: US-RB-012606-10

PATIENT
  Age: 45 Year
  Sex: Female

DRUGS (6)
  1. SUBOXONE [Suspect]
     Indication: DRUG DEPENDENCE
     Route: 060
     Dates: start: 20100601
  2. SOMA [Suspect]
     Indication: PRODUCT USED FOR UNKNOWN INDICATION
     Dosage: DOSING DETAILS UNKNOWN
     Route: 065
     Dates: end: 20100601
  3. XANAX [Suspect]
     Indication: PRODUCT USED FOR UNKNOWN INDICATION
     Dosage: DOSING DETAILS UNKNOWN
     Route: 065
     Dates: end: 20100601
  4. KLONOPIN [Suspect]
     Indication: ANXIETY
     Dosage: TAPERING UNKNOWN AMOUNT SINCE JUNE 2010
     Route: 065
  5. AMBIEN [Suspect]
     Indication: INSOMNIA
     Dosage: DOSING DETAILS UNKNOWN
     Route: 065
     Dates: end: 20100601
  6. CELEXA [Concomitant]
     Indication: DEPRESSION
     Dosage: DOSING DETAILS UNKNOWN
     Route: 065

REACTIONS (5)
  - ANXIETY [None]
  - FATIGUE [None]
  - HALLUCINATIONS, MIXED [None]
  - HEADACHE [None]
  - NAUSEA [None]
